FAERS Safety Report 12190647 (Version 1)
Quarter: 2016Q1

REPORT INFORMATION
  Report Type: Spontaneous
  Country: US (occurrence: US)
  Receive Date: 20160318
  Receipt Date: 20160318
  Transmission Date: 20160526
  Serious: No
  Sender: FDA-Public Use
  Company Number: US-GLAXOSMITHKLINE-US2016GSK035632

PATIENT
  Sex: Female

DRUGS (1)
  1. TANZEUM [Suspect]
     Active Substance: ALBIGLUTIDE
     Indication: ACCIDENTAL EXPOSURE TO PRODUCT
     Dosage: UNK
     Dates: start: 20160302

REACTIONS (4)
  - Product preparation error [Unknown]
  - Accidental exposure to product [Recovered/Resolved]
  - Device use error [Unknown]
  - Device leakage [Unknown]

NARRATIVE: CASE EVENT DATE: 20160302
